FAERS Safety Report 8542477-6 (Version None)
Quarter: 2012Q3

REPORT INFORMATION
  Report Type: 
  Country: None (occurrence: None)
  Receive Date: 20120726
  Receipt Date: 20110720
  Transmission Date: 20120928
  Serious: Yes (Other)
  Sender: FDA-Public Use
  Company Number: US-ASTRAZENECA-2009UW00596

PATIENT
  Age: 19685 Day
  Sex: Male
  Weight: 92.5 kg

DRUGS (22)
  1. SEROQUEL [Suspect]
     Dosage: 200 MG, TWO TABLETS PO QID
     Route: 048
     Dates: start: 20031125
  2. PROMETHAZINE [Concomitant]
     Indication: NAUSEA
     Dosage: PRN
     Route: 048
     Dates: start: 20031125
  3. PROMETHAZINE [Concomitant]
     Indication: VOMITING
     Dosage: PRN
     Route: 048
     Dates: start: 20031125
  4. SEROQUEL [Suspect]
     Indication: ANXIETY
     Route: 048
     Dates: start: 20000101
  5. CELEXA [Concomitant]
     Indication: DEPRESSION
     Route: 048
     Dates: start: 20031125
  6. TRAZODONE HYDROCHLORIDE [Concomitant]
     Dates: start: 20070101, end: 20090101
  7. SIMVASTATIN [Concomitant]
     Indication: BLOOD CHOLESTEROL
     Dosage: 80 MG, ONE HALF TABLET PO QHS
     Route: 048
     Dates: start: 20031125
  8. TEGRETOL [Concomitant]
     Indication: CONVULSION
     Dosage: 200 MG, ONE AND ONE HALF TABLET PO TID
     Route: 048
     Dates: start: 20031125
  9. KLONOPIN [Concomitant]
     Indication: ANXIETY
     Dosage: 1 MG, ONE TABLET PO TID AND TWO TABLETS PO QHS
     Route: 048
     Dates: start: 20031125
  10. KLONOPIN [Concomitant]
     Indication: SLEEP DISORDER
     Dosage: 1 MG, ONE TABLET PO TID AND TWO TABLETS PO QHS
     Route: 048
     Dates: start: 20031125
  11. SEROQUEL [Suspect]
     Indication: FLASHBACK
     Route: 048
     Dates: start: 20000101
  12. NAPROXEN [Concomitant]
     Indication: HEADACHE
     Dosage: 250 MG, ONE TABLET PO Q8H PRN
     Route: 048
     Dates: start: 20031125
  13. SEROQUEL [Suspect]
     Indication: DEPRESSION
     Route: 048
     Dates: start: 20000101
  14. PROPRANOLOL [Concomitant]
     Indication: BLOOD PRESSURE
     Route: 048
     Dates: start: 20031125
  15. GEMFIBROZIL [Concomitant]
     Indication: BLOOD CHOLESTEROL
     Dates: start: 20031125
  16. SEROQUEL [Suspect]
     Dosage: 200 MG, TWO TABLETS PO QID
     Route: 048
     Dates: start: 20031125
  17. ZANTAC [Concomitant]
     Indication: GASTROOESOPHAGEAL REFLUX DISEASE
     Route: 048
     Dates: start: 20031125
  18. NAPROXEN [Concomitant]
     Indication: PAIN
     Dosage: 250 MG, ONE TABLET PO Q8H PRN
     Route: 048
     Dates: start: 20031125
  19. SEROQUEL [Suspect]
     Dosage: 200 MG, TWO TABLETS PO QID
     Route: 048
     Dates: start: 20031125
  20. DOCUSATE SODIUM [Concomitant]
     Indication: FAECES HARD
     Dates: start: 20031125
  21. ZANTAC [Concomitant]
     Indication: DYSPEPSIA
     Route: 048
     Dates: start: 20031125
  22. CARISOPRODOL [Concomitant]
     Indication: MUSCLE RELAXANT THERAPY
     Dosage: 350 MG, TWO TABLETS PO QID
     Route: 048
     Dates: start: 20031125

REACTIONS (3)
  - DIABETES MELLITUS [None]
  - ERECTILE DYSFUNCTION [None]
  - SLEEP APNOEA SYNDROME [None]
